FAERS Safety Report 17252234 (Version 1)
Quarter: 2020Q1

REPORT INFORMATION
  Report Type: Spontaneous
  Country: US (occurrence: US)
  Receive Date: 20200108
  Receipt Date: 20200108
  Transmission Date: 20200409
  Serious: Yes (Hospitalization)
  Sender: FDA-Public Use
  Company Number: None

PATIENT
  Age: 58 Year
  Sex: Female

DRUGS (18)
  1. SILDENAFIL. [Suspect]
     Active Substance: SILDENAFIL
     Indication: PULMONARY ARTERIAL HYPERTENSION
     Route: 048
     Dates: start: 20160106
  2. LORAZEPAM. [Concomitant]
     Active Substance: LORAZEPAM
  3. OMEPRAZOLE. [Concomitant]
     Active Substance: OMEPRAZOLE
  4. ALPRAZOLAM. [Concomitant]
     Active Substance: ALPRAZOLAM
  5. PROAIR HFA [Concomitant]
     Active Substance: ALBUTEROL SULFATE
  6. DIGOXIN. [Concomitant]
     Active Substance: DIGOXIN
  7. SPIRONOLACT [Concomitant]
     Active Substance: SPIRONOLACTONE
  8. ACTIGALL [Concomitant]
     Active Substance: URSODIOL
  9. FLAGYL [Concomitant]
     Active Substance: METRONIDAZOLE\METRONIDAZOLE HYDROCHLORIDE
  10. VALSARTAN. [Concomitant]
     Active Substance: VALSARTAN
  11. CEFTRIAXONE. [Concomitant]
     Active Substance: CEFTRIAXONE
  12. FUROSEMIDE. [Concomitant]
     Active Substance: FUROSEMIDE
  13. METFORMIN [Concomitant]
     Active Substance: METFORMIN HYDROCHLORIDE
  14. OPSUMIT [Concomitant]
     Active Substance: MACITENTAN
  15. RESTASIS [Concomitant]
     Active Substance: CYCLOSPORINE
  16. VITMAIN D [Concomitant]
  17. LUMIGAN [Concomitant]
     Active Substance: BIMATOPROST
  18. SINGULAIR [Concomitant]
     Active Substance: MONTELUKAST SODIUM

REACTIONS (1)
  - Diverticulitis [None]
